FAERS Safety Report 15689061 (Version 1)
Quarter: 2018Q4

REPORT INFORMATION
  Report Type: Spontaneous
  Country: US (occurrence: US)
  Receive Date: 20181205
  Receipt Date: 20181205
  Transmission Date: 20190205
  Serious: Yes (Other)
  Sender: FDA-Public Use
  Company Number: US-BAUSCH-BL-2017-031884

PATIENT
  Age: 61 Year
  Sex: Female
  Weight: 70.37 kg

DRUGS (7)
  1. ROSUVASTATIN. [Concomitant]
     Active Substance: ROSUVASTATIN
     Indication: PRODUCT USED FOR UNKNOWN INDICATION
  2. PREDNISONE. [Suspect]
     Active Substance: PREDNISONE
     Dosage: TAPERED BY 10MG EVERY WEEK
     Route: 065
     Dates: start: 2017, end: 201709
  3. APRISO [Suspect]
     Active Substance: MESALAMINE
     Route: 048
     Dates: start: 2017
  4. PREDNISONE. [Suspect]
     Active Substance: PREDNISONE
     Indication: PYREXIA
     Route: 065
     Dates: start: 2017, end: 2017
  5. PREDNISONE. [Suspect]
     Active Substance: PREDNISONE
     Indication: COLITIS ULCERATIVE
     Route: 065
     Dates: start: 201708, end: 2017
  6. PREDNISONE. [Suspect]
     Active Substance: PREDNISONE
     Dosage: TAPERED BY 5MG EVERY WEEK
     Route: 065
     Dates: start: 2017, end: 201709
  7. APRISO [Suspect]
     Active Substance: MESALAMINE
     Indication: COLITIS ULCERATIVE
     Route: 048
     Dates: start: 201706, end: 2017

REACTIONS (3)
  - Pyrexia [Recovered/Resolved]
  - Condition aggravated [Not Recovered/Not Resolved]
  - Alopecia [Not Recovered/Not Resolved]

NARRATIVE: CASE EVENT DATE: 201706
